FAERS Safety Report 19953078 (Version 1)
Quarter: 2021Q4

REPORT INFORMATION
  Report Type: Spontaneous
  Country: FR (occurrence: FR)
  Receive Date: 20211014
  Receipt Date: 20211014
  Transmission Date: 20220304
  Serious: Yes (Hospitalization)
  Sender: FDA-Public Use
  Company Number: FR-ABBVIE-21K-056-4115996-00

PATIENT
  Age: 80 Year
  Sex: Female
  Weight: 44.2 kg

DRUGS (8)
  1. VALPROATE SODIUM [Suspect]
     Active Substance: VALPROATE SODIUM
     Indication: Behaviour disorder
     Dosage: 300-300-500
     Route: 048
     Dates: start: 20181003, end: 20190107
  2. LOSARTAN POTASSIUM [Suspect]
     Active Substance: LOSARTAN POTASSIUM
     Indication: Hypertension
     Dosage: 1-0-0
     Route: 048
     Dates: start: 20181003
  3. MIANSERIN HYDROCHLORIDE [Suspect]
     Active Substance: MIANSERIN HYDROCHLORIDE
     Indication: Depression
     Dosage: 1-0-2
     Route: 048
     Dates: start: 20181003, end: 20190107
  4. MELATONIN [Suspect]
     Active Substance: MELATONIN
     Indication: Somnolence
     Dosage: 0-0-1
     Route: 048
     Dates: start: 20181003
  5. LOXAPINE [Suspect]
     Active Substance: LOXAPINE
     Indication: Behaviour disorder
     Dosage: (25MG/ML) 2-2-3
     Route: 048
     Dates: start: 20190102, end: 20190107
  6. MOVICOL [Suspect]
     Active Substance: POLYETHYLENE GLYCOL 3350\POTASSIUM CHLORIDE\SODIUM BICARBONATE\SODIUM CHLORIDE
     Indication: Constipation
     Dosage: ONE SACHET PER DAY
     Route: 048
     Dates: start: 20181003
  7. LOSARTAN [Suspect]
     Active Substance: LOSARTAN
     Indication: Product used for unknown indication
     Route: 065
  8. LOXAPINE [Suspect]
     Active Substance: LOXAPINE
     Indication: Product used for unknown indication
     Dosage: (25MG/ML) 2-2-3
     Route: 048

REACTIONS (2)
  - Sedation [Recovered/Resolved]
  - Neuropsychiatric symptoms [Unknown]

NARRATIVE: CASE EVENT DATE: 20190107
